FAERS Safety Report 24387365 (Version 1)
Quarter: 2024Q4

REPORT INFORMATION
  Report Type: Spontaneous
  Country: US (occurrence: None)
  Receive Date: 20241001
  Receipt Date: 20241001
  Transmission Date: 20250115
  Serious: No
  Sender: Public
  Company Number: None

PATIENT
  Age: 54 Year
  Sex: Female
  Weight: 176.9 kg

DRUGS (3)
  1. HUMIRA [Suspect]
     Active Substance: ADALIMUMAB
     Indication: Rheumatoid arthritis
     Dosage: FREQUENCY : EVERY OTHER WEEK;?
     Route: 058
     Dates: start: 202409
  2. AMLODIPINE [Suspect]
     Active Substance: AMLODIPINE BESYLATE
  3. VALSARTAN [Suspect]
     Active Substance: VALSARTAN

REACTIONS (2)
  - Throat irritation [None]
  - Breath sounds abnormal [None]
